FAERS Safety Report 8517940 (Version 3)
Quarter: 2013Q1

REPORT INFORMATION
  Report Type: Spontaneous
  Country: US (occurrence: US)
  Receive Date: 20120417
  Receipt Date: 20130220
  Transmission Date: 20140127
  Serious: No
  Sender: FDA-Public Use
  Company Number: US-ASTRAZENECA-2011SE58921

PATIENT
  Age: 50 Year
  Sex: Female

DRUGS (3)
  1. NEXIUM [Suspect]
     Route: 048
  2. ASA [Suspect]
     Route: 065
  3. CODEINE [Suspect]
     Route: 065

REACTIONS (6)
  - Chest discomfort [Unknown]
  - Gastrooesophageal reflux disease [Unknown]
  - Chest pain [Recovered/Resolved]
  - Chest discomfort [Unknown]
  - Drug hypersensitivity [Unknown]
  - Drug dose omission [Unknown]
